FAERS Safety Report 25578083 (Version 2)
Quarter: 2025Q3

REPORT INFORMATION
  Report Type: Report from Study
  Country: US (occurrence: US)
  Receive Date: 20250718
  Receipt Date: 20250724
  Transmission Date: 20251021
  Serious: No
  Sender: BIOGEN
  Company Number: US-BIOGEN-2025BI01317338

PATIENT
  Sex: Female

DRUGS (1)
  1. ZURZUVAE [Suspect]
     Active Substance: ZURANOLONE
     Indication: Perinatal depression
     Dosage: FOR 14 DAYS
     Route: 050
     Dates: end: 202507

REACTIONS (6)
  - Ear pain [Unknown]
  - Rash pruritic [Unknown]
  - Visual impairment [Unknown]
  - Dizziness [Unknown]
  - Insomnia [Unknown]
  - Abdominal pain [Unknown]
